FAERS Safety Report 14606070 (Version 2)
Quarter: 2018Q2

REPORT INFORMATION
  Report Type: Spontaneous
  Country: AT (occurrence: AT)
  Receive Date: 20180307
  Receipt Date: 20180405
  Transmission Date: 20180711
  Serious: Yes (Hospitalization)
  Sender: FDA-Public Use
  Company Number: AT-ROCHE-2079325

PATIENT
  Age: 31 Year
  Sex: Female
  Weight: 47 kg

DRUGS (6)
  1. MABTHERA [Suspect]
     Active Substance: RITUXIMAB
     Indication: ARTHRITIS
     Route: 042
     Dates: start: 20180121, end: 20180121
  2. XEFO [Concomitant]
     Active Substance: LORNOXICAM
     Indication: SYSTEMIC LUPUS ERYTHEMATOSUS
     Dosage: IF NEEDED
     Route: 048
  3. APREDNISLON [Concomitant]
     Active Substance: PREDNISOLONE
     Indication: SYSTEMIC LUPUS ERYTHEMATOSUS
     Route: 048
  4. EBETREXAT [Concomitant]
     Active Substance: METHOTREXATE SODIUM
     Indication: SYSTEMIC LUPUS ERYTHEMATOSUS
     Route: 058
  5. MABTHERA [Suspect]
     Active Substance: RITUXIMAB
     Indication: SYSTEMIC LUPUS ERYTHEMATOSUS
     Route: 042
     Dates: start: 20180117, end: 20180117
  6. PARIET [Concomitant]
     Active Substance: RABEPRAZOLE SODIUM
     Route: 048

REACTIONS (5)
  - Serum sickness [Recovered/Resolved]
  - Intentional product use issue [Unknown]
  - Off label use [Unknown]
  - Thrombocytopenia [Recovered/Resolved]
  - Neutropenia [Recovered/Resolved]

NARRATIVE: CASE EVENT DATE: 20180127
